FAERS Safety Report 17051397 (Version 1)
Quarter: 2019Q4

REPORT INFORMATION
  Report Type: Other
  Country: ES (occurrence: ES)
  Receive Date: 20191120
  Receipt Date: 20191120
  Transmission Date: 20200122
  Serious: Yes (Other)
  Sender: FDA-Public Use
  Company Number: ES-CELLTRION INC.-2019ES026421

PATIENT

DRUGS (2)
  1. TRUXIMA [Suspect]
     Active Substance: RITUXIMAB-ABBS
     Indication: SJOGREN^S SYNDROME
     Dosage: 1000 MG (1 TOTAL)
     Route: 042
     Dates: start: 20190225, end: 20190225
  2. TRUXIMA [Suspect]
     Active Substance: RITUXIMAB-ABBS
     Dosage: 1000 MG (1 TOTAL)
     Route: 042
     Dates: start: 20190225, end: 20190225

REACTIONS (7)
  - Chest discomfort [Recovered/Resolved]
  - Dizziness [Recovered/Resolved]
  - Infusion related reaction [Recovered/Resolved]
  - Face oedema [Recovered/Resolved]
  - Product use in unapproved indication [Unknown]
  - Odynophagia [Recovered/Resolved]
  - Dyspnoea [Recovered/Resolved]

NARRATIVE: CASE EVENT DATE: 20190225
